FAERS Safety Report 20059752 (Version 1)
Quarter: 2021Q4

REPORT INFORMATION
  Report Type: Spontaneous
  Country: FR (occurrence: FR)
  Receive Date: 20211111
  Receipt Date: 20211111
  Transmission Date: 20220303
  Serious: Yes (Death, Life-Threatening, Other)
  Sender: FDA-Public Use
  Company Number: FR-ROCHE-2889086

PATIENT
  Age: 58 Year
  Sex: Female

DRUGS (14)
  1. SUFENTANIL [Suspect]
     Active Substance: SUFENTANIL
     Indication: Anaesthesia
     Dosage: UNK
     Route: 042
     Dates: start: 20210412, end: 20210412
  2. MIDAZOLAM [Suspect]
     Active Substance: MIDAZOLAM
     Indication: Anaesthesia
     Dosage: UNK
     Route: 042
     Dates: start: 20210412
  3. PAROXETINE [Suspect]
     Active Substance: PAROXETINE
     Indication: Depression
     Dosage: 10 MILLIGRAM, QD
     Route: 048
  4. CEFAZOLIN [Suspect]
     Active Substance: CEFAZOLIN
     Indication: Antibiotic prophylaxis
     Dosage: 2 GRAM
     Route: 042
     Dates: start: 20210412, end: 20210412
  5. ROPIVACAINE HYDROCHLORIDE [Suspect]
     Active Substance: ROPIVACAINE HYDROCHLORIDE
     Indication: Anaesthesia
     Dosage: 20 MILLIGRAM
     Route: 039
     Dates: start: 20210412, end: 20210412
  6. HEPARIN CALCIUM [Suspect]
     Active Substance: HEPARIN CALCIUM
     Indication: Product used for unknown indication
     Dosage: UNK
     Route: 065
  7. EVICEL [Suspect]
     Active Substance: FIBRINOGEN HUMAN\THROMBIN HUMAN
     Indication: Anaesthesia
     Dosage: DOSE: 1
     Route: 065
     Dates: start: 20210412, end: 20210412
  8. HEPARIN SODIUM [Suspect]
     Active Substance: HEPARIN SODIUM
     Indication: Product used for unknown indication
     Dosage: UNK
     Route: 065
  9. DEXAMETHASONE [Suspect]
     Active Substance: DEXAMETHASONE
     Indication: Anaesthesia
     Dosage: UNK
     Route: 042
     Dates: start: 20210412, end: 20210412
  10. DIPRIVAN [Suspect]
     Active Substance: PROPOFOL
     Indication: Anaesthesia
     Dosage: UNK
     Route: 042
     Dates: start: 20210412
  11. TRANEXAMIC ACID [Suspect]
     Active Substance: TRANEXAMIC ACID
     Indication: Haemorrhage
     Dosage: 1 DOSAGE FORM, QD
     Route: 065
     Dates: start: 20210412, end: 20210412
  12. PROTAMINE SULFATE [Suspect]
     Active Substance: PROTAMINE SULFATE
     Indication: Haemorrhage
     Dosage: 2500 INTERNATIONAL UNIT
     Route: 065
  13. INIPOMP [Concomitant]
     Active Substance: PANTOPRAZOLE SODIUM
     Dosage: 1 DOSAGE FORM, QD
     Route: 048
  14. PIROXICAM BETADEX [Concomitant]
     Active Substance: PIROXICAM BETADEX
     Dosage: 1 DOSAGE FORM, QD
     Route: 048

REACTIONS (8)
  - Tonic clonic movements [Fatal]
  - Pulmonary oedema [Unknown]
  - Shock haemorrhagic [Unknown]
  - Haemorrhage [Unknown]
  - Back pain [Unknown]
  - Metabolic acidosis [Unknown]
  - Hypertension [Unknown]
  - Product use issue [Unknown]

NARRATIVE: CASE EVENT DATE: 20210412
